FAERS Safety Report 24124112 (Version 2)
Quarter: 2024Q3

REPORT INFORMATION
  Report Type: Spontaneous
  Country: US (occurrence: US)
  Receive Date: 20240723
  Receipt Date: 20240725
  Transmission Date: 20241017
  Serious: No
  Sender: Haleon PLC
  Company Number: US-HALEON-2188244

PATIENT
  Age: 59 Year
  Sex: Female

DRUGS (1)
  1. ADVIL MULTI-SYMPTOM COLD AND FLU [Suspect]
     Active Substance: CHLORPHENIRAMINE MALEATE\IBUPROFEN\PHENYLEPHRINE HYDROCHLORIDE
     Indication: Nasopharyngitis
     Dosage: 2 - TABLETS (TAB) A DAY
     Dates: start: 20240719, end: 20240723

REACTIONS (1)
  - Drug ineffective [Unknown]
